FAERS Safety Report 17817186 (Version 1)
Quarter: 2020Q2

REPORT INFORMATION
  Report Type: Spontaneous
  Country: CN (occurrence: CN)
  Receive Date: 20200522
  Receipt Date: 20200522
  Transmission Date: 20200714
  Serious: Yes (Other)
  Sender: FDA-Public Use
  Company Number: CN-BAYER-2020-089945

PATIENT
  Age: 77 Year
  Sex: Female

DRUGS (8)
  1. CEFAMANDOLE [Concomitant]
     Active Substance: CEFAMANDOLE
     Indication: ANTI-INFECTIVE THERAPY
     Dosage: UNK
     Dates: start: 20191026, end: 20191028
  2. DIAZEPAM. [Concomitant]
     Active Substance: DIAZEPAM
     Dosage: UNK
     Route: 030
     Dates: start: 20191028
  3. AVELOX [Suspect]
     Active Substance: MOXIFLOXACIN HYDROCHLORIDE
     Indication: PNEUMONIA
     Dosage: 0.4 G, QD
     Route: 041
     Dates: start: 20191029, end: 20191107
  4. DILTIAZEM. [Concomitant]
     Active Substance: DILTIAZEM
     Indication: ARTERIOSPASM CORONARY
     Dosage: UNK
     Dates: start: 201910
  5. NOREPINEPHRINE. [Concomitant]
     Active Substance: NOREPINEPHRINE
     Dosage: UNK
     Dates: start: 201910
  6. AVELOX [Suspect]
     Active Substance: MOXIFLOXACIN HYDROCHLORIDE
     Indication: PNEUMONIA
     Dosage: 0.4 G, QD
     Route: 048
     Dates: start: 20191108, end: 20191109
  7. ASPIRIN [ACETYLSALICYLIC ACID] [Concomitant]
     Active Substance: ASPIRIN
     Indication: PLATELET AGGREGATION INHIBITION
     Dosage: UNK
     Dates: start: 201910, end: 20191029
  8. CLOPIDOGREL [Concomitant]
     Active Substance: CLOPIDOGREL BISULFATE
     Indication: PLATELET AGGREGATION INHIBITION
     Dosage: UNK
     Dates: start: 201910, end: 20191029

REACTIONS (1)
  - Sepsis [None]

NARRATIVE: CASE EVENT DATE: 2019
